FAERS Safety Report 8837697 (Version 1)
Quarter: 2012Q4

REPORT INFORMATION
  Report Type: 
  Country: US (occurrence: US)
  Receive Date: 20121012
  Receipt Date: 20121012
  Transmission Date: 20130627
  Serious: Yes (Other)
  Sender: FDA-Public Use
  Company Number: US-MEDICIS-2012P1060583

PATIENT
  Sex: Female

DRUGS (6)
  1. SODIUM PHENYLBUTYRATE [Suspect]
  2. SODIUM PHENYLBUTYRATE [Suspect]
  3. SODIUM BENZOATE [Suspect]
  4. SODIUM PHENYLACETATE [Suspect]
  5. ARGININE [Suspect]
  6. ARGININE [Suspect]

REACTIONS (6)
  - Hyperammonaemia [Unknown]
  - Mental retardation [Not Recovered/Not Resolved]
  - Left ventricular hypertrophy [Not Recovered/Not Resolved]
  - Strabismus [Unknown]
  - Amblyopia [Unknown]
  - Cataract [Not Recovered/Not Resolved]
